FAERS Safety Report 6102658-8 (Version None)
Quarter: 2009Q1

REPORT INFORMATION
  Report Type: 
  Country: None (occurrence: None)
  Receive Date: 20090304
  Receipt Date: 20090121
  Transmission Date: 20090719
  Serious: No
  Sender: FDA-Public Use
  Company Number: A0757642A

PATIENT
  Sex: Male

DRUGS (3)
  1. REQUIP XL [Suspect]
     Indication: PARKINSON'S DISEASE
     Dosage: 2MG UNKNOWN
     Route: 048
     Dates: start: 20081001, end: 20081118
  2. SINEMET [Concomitant]
  3. ANTIBIOTIC [Concomitant]

REACTIONS (1)
  - DRUG INEFFECTIVE [None]
